FAERS Safety Report 25804529 (Version 5)
Quarter: 2025Q4

REPORT INFORMATION
  Report Type: Spontaneous
  Country: US (occurrence: US)
  Receive Date: 20250915
  Receipt Date: 20251103
  Transmission Date: 20260118
  Serious: No
  Sender: GILEAD
  Company Number: US-GILEAD-2025-0728321

PATIENT
  Age: 2 Decade
  Sex: Female
  Weight: 69.6 kg

DRUGS (6)
  1. LENACAPAVIR [Suspect]
     Active Substance: LENACAPAVIR
     Indication: HIV infection
     Dosage: (TABLET FORMULATION)
     Route: 065
     Dates: start: 20250829
  2. LENACAPAVIR [Suspect]
     Active Substance: LENACAPAVIR
     Indication: HIV infection
     Dosage: (INJECTION FORMULATION)
     Route: 065
     Dates: start: 20250829
  3. BIKTARVY [Suspect]
     Active Substance: BICTEGRAVIR SODIUM\EMTRICITABINE\TENOFOVIR ALAFENAMIDE FUMARATE
     Indication: HIV infection
     Dosage: 1 DOSAGE FORM
     Route: 065
     Dates: start: 20230228, end: 20250829
  4. CABOTEGRAVIR [Concomitant]
     Active Substance: CABOTEGRAVIR
  5. SYMTUZA [Concomitant]
     Active Substance: COBICISTAT\DARUNAVIR\EMTRICITABINE\TENOFOVIR ALAFENAMIDE
     Dosage: UNK
     Dates: start: 20250829, end: 20250930
  6. ATOVAQUONE [Concomitant]
     Active Substance: ATOVAQUONE
     Dosage: UNK
     Dates: start: 20250430

REACTIONS (3)
  - Viral load increased [Recovered/Resolved]
  - Treatment noncompliance [Recovered/Resolved]
  - Maternal exposure during pregnancy [Recovered/Resolved]

NARRATIVE: CASE EVENT DATE: 20241231
